FAERS Safety Report 10676187 (Version 1)
Quarter: 2014Q4

REPORT INFORMATION
  Report Type: Spontaneous
  Country: CA (occurrence: CA)
  Receive Date: 20141226
  Receipt Date: 20141226
  Transmission Date: 20150529
  Serious: Yes (Hospitalization)
  Sender: FDA-Public Use
  Company Number: CA-ROCHE-1512520

PATIENT
  Sex: Female

DRUGS (3)
  1. TAXOTERE [Suspect]
     Active Substance: DOCETAXEL
     Indication: BREAST CANCER
     Route: 042
  2. PERJETA [Suspect]
     Active Substance: PERTUZUMAB
     Indication: BREAST CANCER METASTATIC
     Route: 042
  3. HERCEPTIN [Suspect]
     Active Substance: TRASTUZUMAB
     Indication: BREAST CANCER
     Route: 042

REACTIONS (9)
  - Lacrimation increased [Unknown]
  - Pyrexia [Unknown]
  - Arthralgia [Unknown]
  - Decreased appetite [Unknown]
  - Infection [Unknown]
  - Oropharyngeal pain [Unknown]
  - Ageusia [Unknown]
  - Nausea [Unknown]
  - Blood iron decreased [Unknown]
